FAERS Safety Report 21896873 (Version 3)
Quarter: 2023Q1

REPORT INFORMATION
  Report Type: Spontaneous
  Country: US (occurrence: US)
  Receive Date: 20230123
  Receipt Date: 20230210
  Transmission Date: 20230418
  Serious: Yes (Hospitalization, Other)
  Sender: FDA-Public Use
  Company Number: US-SA-SAC20230120000259

PATIENT
  Age: 80 Year
  Sex: Male

DRUGS (1)
  1. DUPIXENT [Suspect]
     Active Substance: DUPILUMAB
     Dosage: 300 MG,UNK
     Route: 058
     Dates: start: 20221230

REACTIONS (2)
  - Cellulitis [Unknown]
  - Back pain [Unknown]

NARRATIVE: CASE EVENT DATE: 20230103
